FAERS Safety Report 7974110-6 (Version None)
Quarter: 2011Q4

REPORT INFORMATION
  Report Type: 
  Country: None (occurrence: None)
  Receive Date: 20111213
  Receipt Date: 20111207
  Transmission Date: 20120403
  Serious: Yes (Life-Threatening, Hospitalization, Disabling, Other)
  Sender: FDA-Public Use
  Company Number: PHHY2011GB106784

PATIENT
  Age: 56 Year
  Sex: Female
  Weight: 72.5 kg

DRUGS (14)
  1. WARFARIN SODIUM [Suspect]
     Indication: ATRIAL FIBRILLATION
     Route: 048
     Dates: start: 20110101
  2. ALLOPURINOL [Suspect]
     Indication: GOUT
     Route: 048
     Dates: start: 20110701, end: 20110701
  3. CANDESARTAN CILEXETIL [Concomitant]
  4. HUMALOG [Concomitant]
  5. LEVOTHYROXINE SODIUM [Concomitant]
  6. GLIMEPIRIDE [Concomitant]
  7. SIMVASTATIN [Concomitant]
  8. FUROSEMIDE [Concomitant]
  9. ACETAMINOPHEN [Concomitant]
  10. SERTRALINE HYDROCHLORIDE [Concomitant]
  11. SPIRONOLACTONE [Concomitant]
  12. BISOPROLOL FUMARATE [Concomitant]
  13. COLCHICINE [Concomitant]
  14. GLYCERYL TRINITRATE [Concomitant]

REACTIONS (3)
  - SKIN NECROSIS [None]
  - SKIN LESION [None]
  - URINARY TRACT INFECTION [None]
